FAERS Safety Report 9806583 (Version 1)
Quarter: 2014Q1

REPORT INFORMATION
  Report Type: Spontaneous
  Country: US (occurrence: US)
  Receive Date: 20140109
  Receipt Date: 20140109
  Transmission Date: 20141002
  Serious: No
  Sender: FDA-Public Use
  Company Number: US-PFIZER INC-2014004370

PATIENT
  Sex: Female

DRUGS (17)
  1. CELEBREX [Suspect]
     Dosage: UNK
  2. NEURONTIN [Suspect]
     Dosage: UNK
  3. PROTONIX [Suspect]
     Dosage: UNK
  4. ALPRAZOLAM [Suspect]
     Dosage: UNK
  5. FLAGYL [Suspect]
     Dosage: UNK
  6. TETRACYCLINE HCL [Suspect]
     Dosage: UNK
  7. VENLAFAXINE HCL [Suspect]
     Dosage: UNK
  8. VERAPAMIL HCL [Suspect]
     Dosage: UNK
  9. LISINOPRIL [Suspect]
     Dosage: UNK
  10. CECLOR [Suspect]
     Dosage: UNK
  11. CODEINE [Suspect]
     Dosage: UNK
  12. NARCAN [Suspect]
     Dosage: UNK
  13. PERCOCET [Suspect]
     Dosage: UNK
  14. TEMAZEPAM [Suspect]
     Dosage: UNK
  15. ULTRACET [Suspect]
     Dosage: UNK
  16. ULTRAM [Suspect]
     Dosage: UNK
  17. VIOXX [Suspect]
     Dosage: UNK

REACTIONS (1)
  - Drug hypersensitivity [Unknown]
